FAERS Safety Report 8359144-4 (Version None)
Quarter: 2012Q2

REPORT INFORMATION
  Report Type: 
  Country: None (occurrence: None)
  Receive Date: 20120511
  Receipt Date: 20120425
  Transmission Date: 20120825
  Serious: Yes (Other)
  Sender: FDA-Public Use
  Company Number: 1225118

PATIENT
  Age: 71 Year
  Sex: Female

DRUGS (14)
  1. CIPROFLOXACIN [Suspect]
     Indication: PRODUCT USED FOR UNKNOWN INDICATION
     Dosage: 600 MG, 2X/DAY, 26400 MG CUMULATIVE DOSE, INTRAVENOUS DRIP
     Route: 041
     Dates: start: 20120111, end: 20120206
  2. CIPROFLOXACIN [Suspect]
     Indication: PRODUCT USED FOR UNKNOWN INDICATION
     Dosage: 750 MG, TWICE A DAY, 34,500 MG CUMULATIVE DOSE ORAL
     Route: 048
     Dates: start: 20120110, end: 20120211
  3. (TEICOPLANN) [Concomitant]
  4. ASPIRIN [Concomitant]
  5. LASOPRAZOLE [Concomitant]
  6. PIPERACILLIN AND TAZOBACTAM [Suspect]
     Indication: PRODUCT USED FOR UNKNOWN INDICATION
     Dosage: 4.5 G GRAM(S), INTRAVENOUS DRIP
     Route: 041
     Dates: start: 20120221, end: 20120222
  7. MAGNESIUM SULPHATE /01097001/) [Concomitant]
  8. FUROSEMIDE [Concomitant]
  9. ATORVASTATIN CALCIUM [Concomitant]
  10. (MAGNESIUM ASPARTATE HYDROCHLORIDE) [Suspect]
     Indication: HYPOMAGNESAEMIA
     Dosage: 10 MMOL, ONCE  A DAY, 200 MMOL CUMULATIVE DOSE ORAL
     Route: 048
     Dates: start: 20120113, end: 20120209
  11. (NICORANDIL) [Concomitant]
  12. FERROUS SULFATE TAB [Concomitant]
  13. BISOPROLOL FUMARATE [Concomitant]
  14. NITROFURANTOIN [Concomitant]

REACTIONS (6)
  - SKIN WARM [None]
  - RASH MACULO-PAPULAR [None]
  - RASH ERYTHEMATOUS [None]
  - PRURITUS [None]
  - PRODUCT CONTAMINATION MICROBIAL [None]
  - PARAESTHESIA [None]
